FAERS Safety Report 18664069 (Version 2)
Quarter: 2021Q1

REPORT INFORMATION
  Report Type: Report from Study
  Country: JP (occurrence: JP)
  Receive Date: 20201225
  Receipt Date: 20210219
  Transmission Date: 20210419
  Serious: Yes (Hospitalization, Other)
  Sender: FDA-Public Use
  Company Number: JP-AMGEN-JPNCT2019138711

PATIENT
  Age: 82 Year
  Sex: Male

DRUGS (18)
  1. DARBEPOETIN ALFA [Suspect]
     Active Substance: DARBEPOETIN ALFA
     Dosage: 240 MICROGRAM, QWK
     Route: 058
     Dates: start: 20171208, end: 20180216
  2. HEPARINOID [Concomitant]
     Active Substance: CHONDROITIN SULFATE (BOVINE)
     Dosage: UNK
     Route: 061
     Dates: start: 20171222, end: 20180209
  3. DARBEPOETIN ALFA [Suspect]
     Active Substance: DARBEPOETIN ALFA
     Dosage: 240 MICROGRAM, QWK
     Route: 058
     Dates: start: 20190111, end: 20190329
  4. PROMAC D [Concomitant]
     Active Substance: POLAPREZINC
     Dosage: 150 MG
     Route: 048
     Dates: start: 20180209, end: 20180330
  5. HOCHUEKKITO [Concomitant]
     Active Substance: HERBALS
     Dosage: 7.5 GRAM
     Route: 048
     Dates: start: 20180810
  6. PRIMOBOLAN [METENOLONE ACETATE] [Concomitant]
     Active Substance: METHENOLONE ACETATE
     Indication: MYELODYSPLASTIC SYNDROME
     Dosage: 10 MILLIGRAM
     Route: 048
     Dates: start: 20190730, end: 20190812
  7. DARBEPOETIN ALFA [Suspect]
     Active Substance: DARBEPOETIN ALFA
     Indication: MYELODYSPLASTIC SYNDROME
     Dosage: 120 MICROGRAM
     Route: 058
     Dates: start: 20171201, end: 20171201
  8. DARBEPOETIN ALFA [Suspect]
     Active Substance: DARBEPOETIN ALFA
     Dosage: 240 MICROGRAM, QWK
     Route: 058
     Dates: start: 20180518, end: 20180928
  9. PELEX [Concomitant]
     Dosage: 7.5 GRAM
     Route: 048
     Dates: start: 20180316, end: 20180322
  10. NEORAL [Concomitant]
     Active Substance: CYCLOSPORINE
     Indication: MYELODYSPLASTIC SYNDROME
     Dosage: 250 MG
     Route: 048
     Dates: start: 20190507, end: 20190527
  11. PRIMOBOLAN [METENOLONE ACETATE] [Concomitant]
     Active Substance: METHENOLONE ACETATE
     Indication: MYELODYSPLASTIC SYNDROME
  12. DARBEPOETIN ALFA [Suspect]
     Active Substance: DARBEPOETIN ALFA
     Dosage: 240 MICROGRAM, QWK
     Route: 058
     Dates: start: 20200929
  13. METHYCOBAL [Concomitant]
     Active Substance: METHYLCOBALAMIN
     Dosage: 1500 UG
     Route: 048
     Dates: start: 20181214, end: 20190423
  14. DARBEPOETIN ALFA [Suspect]
     Active Substance: DARBEPOETIN ALFA
     Dosage: 240 MICROGRAM, Q2WK
     Route: 058
     Dates: start: 20180302, end: 20180511
  15. DARBEPOETIN ALFA [Suspect]
     Active Substance: DARBEPOETIN ALFA
     Dosage: 240 MICROGRAM, QWK
     Route: 058
     Dates: start: 20181019, end: 20181228
  16. DARBEPOETIN ALFA [Suspect]
     Active Substance: DARBEPOETIN ALFA
     Dosage: 240 MICROGRAM, QWK
     Route: 058
     Dates: start: 20190409, end: 20190514
  17. NINJIN^YOEITO [Concomitant]
     Active Substance: HERBALS
     Indication: MYELODYSPLASTIC SYNDROME
     Dosage: 7.5 G
     Route: 048
     Dates: start: 20190730, end: 20190812
  18. JADENU [Concomitant]
     Active Substance: DEFERASIROX
     Indication: IRON OVERLOAD
     Dosage: 540 MG
     Route: 048
     Dates: start: 20200623

REACTIONS (6)
  - Iron overload [Not Recovered/Not Resolved]
  - Taste disorder [Recovered/Resolved]
  - Decreased appetite [Not Recovered/Not Resolved]
  - Upper respiratory tract inflammation [Recovered/Resolved]
  - Intestinal obstruction [Recovering/Resolving]
  - Ileus [Recovering/Resolving]

NARRATIVE: CASE EVENT DATE: 20180209
